FAERS Safety Report 15283163 (Version 3)
Quarter: 2019Q2

REPORT INFORMATION
  Report Type: Spontaneous
  Country: ES (occurrence: ES)
  Receive Date: 20180816
  Receipt Date: 20190621
  Transmission Date: 20190711
  Serious: Yes (Hospitalization)
  Sender: FDA-Public Use
  Company Number: ES-SUN PHARMACEUTICAL INDUSTRIES LTD-2018RR-181515

PATIENT
  Age: 83 Year
  Sex: Female

DRUGS (2)
  1. OLANZAPINE. [Suspect]
     Active Substance: OLANZAPINE
     Indication: MEDICATION ERROR
     Dosage: ()
     Route: 048
     Dates: start: 20180102, end: 20180102
  2. SINOGAN [Suspect]
     Active Substance: LEVOMEPROMAZINE
     Indication: MEDICATION ERROR
     Dosage: ()
     Route: 048
     Dates: start: 20180102, end: 20180102

REACTIONS (5)
  - Depressed mood [Recovered/Resolved]
  - Somnolence [Recovered/Resolved]
  - Dysarthria [Recovered/Resolved]
  - Medication error [Recovered/Resolved]
  - Depressed level of consciousness [Recovered/Resolved]

NARRATIVE: CASE EVENT DATE: 20180102
